FAERS Safety Report 5959368-7 (Version None)
Quarter: 2008Q4

REPORT INFORMATION
  Report Type: 
  Country: None (occurrence: None)
  Receive Date: 20081119
  Receipt Date: 20081119
  Transmission Date: 20090506
  Serious: Yes (Life-Threatening, Hospitalization)
  Sender: FDA-Public Use
  Company Number: None

PATIENT
  Sex: Female
  Weight: 51.6 kg

DRUGS (16)
  1. WARFARIN SODIUM [Suspect]
     Indication: PULMONARY EMBOLISM
     Dosage: 5MG DAILY PO
     Route: 048
     Dates: start: 20080515, end: 20080524
  2. LASIX [Concomitant]
  3. HEPARIN [Concomitant]
  4. TEMAZEPAM [Concomitant]
  5. TYLENOL (CAPLET) [Concomitant]
  6. CEFAZOLIN [Concomitant]
  7. MORPHINE [Concomitant]
  8. PERCOCET [Concomitant]
  9. PROMETHAZINE [Concomitant]
  10. PROCHLORPERAZINE [Concomitant]
  11. IBUPROFEN TABLETS [Concomitant]
  12. DOCUSATE [Concomitant]
  13. SENNA [Concomitant]
  14. CARVEDILOL [Concomitant]
  15. ENALAPRIL MALEATE [Concomitant]
  16. CEFA [Concomitant]

REACTIONS (4)
  - ANTICOAGULATION DRUG LEVEL ABOVE THERAPEUTIC [None]
  - ANTICOAGULATION DRUG LEVEL BELOW THERAPEUTIC [None]
  - HAEMOGLOBIN DECREASED [None]
  - HAEMORRHAGE [None]
